FAERS Safety Report 13091377 (Version 2)
Quarter: 2017Q1

REPORT INFORMATION
  Report Type: Spontaneous
  Country: US (occurrence: US)
  Receive Date: 20170106
  Receipt Date: 20170111
  Transmission Date: 20170428
  Serious: Yes (Other)
  Sender: FDA-Public Use
  Company Number: US-ASTRAZENECA-2017SE01301

PATIENT
  Age: 700 Month
  Sex: Male
  Weight: 93 kg

DRUGS (2)
  1. BYETTA [Suspect]
     Active Substance: EXENATIDE
     Indication: GLYCOSYLATED HAEMOGLOBIN INCREASED
     Dosage: 5 UG, 1 DOSE, IN THE EVENING
     Route: 058
     Dates: start: 200705
  2. LEVEMER [Concomitant]
     Indication: GLYCOSYLATED HAEMOGLOBIN INCREASED
     Dosage: 50MG ON HIS SYRINGE IN THE MORNING DAILY
     Route: 058
     Dates: start: 201607

REACTIONS (9)
  - Carotid artery stenosis [Unknown]
  - Off label use [Unknown]
  - Confusional state [Unknown]
  - Diabetes mellitus inadequate control [Unknown]
  - Transient ischaemic attack [Unknown]
  - Cerebral artery occlusion [Unknown]
  - Amnesia [Unknown]
  - Weight decreased [Unknown]
  - Hypoglycaemia [Unknown]

NARRATIVE: CASE EVENT DATE: 200705
